FAERS Safety Report 10692617 (Version 2)
Quarter: 2015Q1

REPORT INFORMATION
  Report Type: Report from Study
  Country: EG (occurrence: EG)
  Receive Date: 20150106
  Receipt Date: 20150128
  Transmission Date: 20150720
  Serious: Yes (Death, Other)
  Sender: FDA-Public Use
  Company Number: EG-SA-2015SA000563

PATIENT
  Age: 61 Year
  Sex: Female

DRUGS (5)
  1. VITAMIN E [Concomitant]
     Active Substance: .ALPHA.-TOCOPHEROL
  2. LANTUS [Suspect]
     Active Substance: INSULIN GLARGINE
     Indication: TYPE 2 DIABETES MELLITUS
     Route: 058
     Dates: start: 20140827
  3. MIXTARD HUMAN 70/30 [Concomitant]
     Active Substance: INSULIN HUMAN
  4. NEOMYCIN [Concomitant]
     Active Substance: NEOMYCIN
  5. ALBUMIN [Concomitant]
     Active Substance: ALBUMIN (HUMAN)

REACTIONS (2)
  - Hepatitis C [Unknown]
  - Diabetic complication [Fatal]

NARRATIVE: CASE EVENT DATE: 20141123
